FAERS Safety Report 4366544-6 (Version None)
Quarter: 2004Q2

REPORT INFORMATION
  Report Type: 
  Country: None (occurrence: None)
  Receive Date: 20040527
  Receipt Date: 20040511
  Transmission Date: 20050107
  Serious: Yes (Hospitalization)
  Sender: FDA-Public Use
  Company Number: US-MERCK-0405USA01089

PATIENT
  Age: 4 Year
  Sex: Male

DRUGS (2)
  1. ZYRTEC [Concomitant]
     Indication: RHINITIS SEASONAL
     Route: 065
  2. SINGULAIR [Suspect]
     Indication: RHINITIS ALLERGIC
     Route: 048
     Dates: start: 20040408

REACTIONS (2)
  - CYANOSIS [None]
  - FEBRILE CONVULSION [None]
